FAERS Safety Report 8258466-5 (Version None)
Quarter: 2012Q2

REPORT INFORMATION
  Report Type: 
  Country: None (occurrence: None)
  Receive Date: 20120404
  Receipt Date: 20120330
  Transmission Date: 20120825
  Serious: Yes (Other)
  Sender: FDA-Public Use
  Company Number: US-PFIZER INC-2012082227

PATIENT
  Sex: Male
  Weight: 68.027 kg

DRUGS (5)
  1. PROTONIX [Suspect]
     Indication: GASTRIC DISORDER
     Dosage: 40 MG, 1X/DAY
     Route: 048
     Dates: start: 20100101, end: 20120325
  2. NEURONTIN [Suspect]
     Indication: PAIN
     Dosage: 800 MG, 2X/DAY
     Route: 048
     Dates: start: 20020101
  3. RANITIDINE [Concomitant]
     Dosage: UNK, 1X/DAY
  4. NEURONTIN [Suspect]
     Dosage: 800 MG, 5X/DAY
     Route: 048
     Dates: end: 20120325
  5. TRAZODONE [Concomitant]
     Indication: SLEEP DISORDER
     Dosage: UNK, 1X/DAY

REACTIONS (2)
  - BLOOD CHOLESTEROL INCREASED [None]
  - CONVULSION [None]
